FAERS Safety Report 26131794 (Version 2)
Quarter: 2025Q4

REPORT INFORMATION
  Report Type: Report from Study
  Country: CN (occurrence: CN)
  Receive Date: 20251208
  Receipt Date: 20251215
  Transmission Date: 20260118
  Serious: Yes (Other)
  Sender: VERITY PHARMACEUTICALS INC.
  Company Number: CN-VER-202500053

PATIENT
  Sex: Male

DRUGS (1)
  1. TRIPTORELIN [Suspect]
     Active Substance: TRIPTORELIN
     Indication: Precocious puberty
     Dosage: POWDER AND SOLVENT FOR SUSPENSION FOR INJECTION
     Route: 065

REACTIONS (9)
  - Hypersensitivity [Unknown]
  - Injection site swelling [Unknown]
  - Amaurosis [Recovered/Resolved]
  - Injection site induration [Unknown]
  - Injection site pain [Unknown]
  - Off label use [Unknown]
  - Abscess sterile [Unknown]
  - Loss of consciousness [Recovered/Resolved]
  - Menstrual disorder [Unknown]
